FAERS Safety Report 10444548 (Version 2)
Quarter: 2014Q3

REPORT INFORMATION
  Report Type: Report from Study
  Country: CA (occurrence: CA)
  Receive Date: 20140910
  Receipt Date: 20140910
  Transmission Date: 20150326
  Serious: Yes (Life-Threatening, Hospitalization, Other)
  Sender: FDA-Public Use
  Company Number: CA-BAYER-2014-070896

PATIENT
  Age: 66 Year
  Sex: Male

DRUGS (6)
  1. STIVARGA [Suspect]
     Active Substance: REGORAFENIB
     Indication: COLORECTAL CANCER METASTATIC
     Dosage: 120 MG, QD
     Route: 048
     Dates: start: 20140505, end: 201407
  2. HYDROCHLOROTHIAZIDE. [Concomitant]
     Active Substance: HYDROCHLOROTHIAZIDE
  3. METOPROLOL [Concomitant]
     Active Substance: METOPROLOL
     Dosage: 25MG BID
  4. ASA [Concomitant]
     Active Substance: ASPIRIN
     Dosage: 81MG OD
     Dates: start: 201405
  5. RAMIPRIL. [Concomitant]
     Active Substance: RAMIPRIL
     Dosage: UNK
     Dates: end: 201405
  6. ZOPICLONE [Concomitant]
     Active Substance: ZOPICLONE

REACTIONS (14)
  - Dyspnoea exertional [Not Recovered/Not Resolved]
  - Blood pressure decreased [Recovered/Resolved]
  - Balance disorder [None]
  - Dry skin [None]
  - Sciatica [Recovering/Resolving]
  - Hyperkeratosis [None]
  - Chest pain [None]
  - Heart rate increased [Recovered/Resolved]
  - Pain [None]
  - Fatigue [Recovered/Resolved]
  - Atrial fibrillation [None]
  - Necrotising fasciitis [Recovered/Resolved]
  - Dysphonia [None]
  - Fatigue [None]

NARRATIVE: CASE EVENT DATE: 201405
